FAERS Safety Report 8779005 (Version 1)
Quarter: 2012Q4

REPORT INFORMATION
  Report Type: 
  Country: US (occurrence: US)
  Receive Date: 20120912
  Receipt Date: 20120912
  Transmission Date: 20130627
  Serious: Yes (Death, Hospitalization, Other)
  Sender: FDA-Public Use
  Company Number: US-BAYER-2012-094238

PATIENT
  Age: 37 Year
  Sex: Female

DRUGS (3)
  1. ULTRAVIST [Suspect]
     Indication: COMPUTERISED TOMOGRAM
     Route: 042
  2. ULTRAVIST [Suspect]
     Indication: COMPUTERISED TOMOGRAM ABDOMEN
     Route: 042
  3. ULTRAVIST [Suspect]
     Indication: COMPUTERISED TOMOGRAM
     Route: 042

REACTIONS (11)
  - Stevens-Johnson syndrome [Fatal]
  - Toxic epidermal necrolysis [Fatal]
  - Sepsis [Fatal]
  - Multi-organ failure [Fatal]
  - Device related infection [None]
  - Pathogen resistance [None]
  - Renal failure [None]
  - Respiratory failure [None]
  - Urinary tract infection [None]
  - Wound infection [None]
  - Bacteraemia [Not Recovered/Not Resolved]
